FAERS Safety Report 9115669 (Version 1)
Quarter: 2013Q1

REPORT INFORMATION
  Report Type: Spontaneous
  Country: US (occurrence: US)
  Receive Date: 20130225
  Receipt Date: 20130225
  Transmission Date: 20140127
  Serious: Yes (Hospitalization)
  Sender: FDA-Public Use
  Company Number: US-ASTRAZENECA-2013SE10689

PATIENT
  Sex: Female

DRUGS (2)
  1. PULMICORT RESPULES [Suspect]
     Indication: ASTHMA
     Dosage: RESCUE INHALER, SOMETIMES FOR 1-2 WEEKS, AS NEEDED
     Route: 055
  2. ALBUTEROL [Concomitant]

REACTIONS (4)
  - Adverse event [Unknown]
  - Condition aggravated [Unknown]
  - Hyperglycaemia [Unknown]
  - Intentional drug misuse [Unknown]
